FAERS Safety Report 7428083-5 (Version None)
Quarter: 2011Q2

REPORT INFORMATION
  Report Type: 
  Country: None (occurrence: None)
  Receive Date: 20110421
  Receipt Date: 20110412
  Transmission Date: 20111010
  Serious: No
  Sender: FDA-Public Use
  Company Number: US-BIOGENIDEC-2010BI039086

PATIENT
  Age: 55 Year
  Sex: Female

DRUGS (5)
  1. TYSABRI [Suspect]
     Route: 042
     Dates: start: 20110101
  2. AVONEX [Concomitant]
     Route: 030
  3. TYSABRI [Suspect]
     Indication: MULTIPLE SCLEROSIS
     Route: 042
     Dates: start: 20100629, end: 20100101
  4. AVONEX [Concomitant]
     Indication: MULTIPLE SCLEROSIS
     Route: 030
     Dates: start: 20080501
  5. AVONEX [Concomitant]
     Route: 030
     Dates: start: 20041119

REACTIONS (6)
  - CHILLS [None]
  - FLUSHING [None]
  - PRURITUS [None]
  - ADVERSE DRUG REACTION [None]
  - PAIN IN EXTREMITY [None]
  - CHEST PAIN [None]
